FAERS Safety Report 4746945-4 (Version None)
Quarter: 2005Q3

REPORT INFORMATION
  Report Type: 
  Country: None (occurrence: None)
  Receive Date: 20050815
  Receipt Date: 20050801
  Transmission Date: 20060218
  Serious: Yes (Other)
  Sender: FDA-Public Use
  Company Number: USA0508104317

PATIENT
  Sex: Female

DRUGS (1)
  1. FORTEO [Suspect]
     Indication: OSTEOPOROSIS
     Dates: start: 20050701

REACTIONS (5)
  - BONE DISORDER [None]
  - FALL [None]
  - INJURY [None]
  - PHARMACEUTICAL PRODUCT COMPLAINT [None]
  - UPPER LIMB FRACTURE [None]
